FAERS Safety Report 25426137 (Version 2)
Quarter: 2025Q3

REPORT INFORMATION
  Report Type: Spontaneous
  Country: CA (occurrence: CA)
  Receive Date: 20250612
  Receipt Date: 20250721
  Transmission Date: 20251021
  Serious: Yes (Other)
  Sender: Haleon PLC
  Company Number: CA-HALEON-2246423

PATIENT
  Age: 12 Year
  Sex: Female

DRUGS (2)
  1. ADVIL [Suspect]
     Active Substance: IBUPROFEN
     Indication: Drug provocation test
  2. ADVIL [Suspect]
     Active Substance: IBUPROFEN
     Route: 048

REACTIONS (3)
  - Anaphylactic reaction [Unknown]
  - Conjunctivitis [Unknown]
  - Off label use [Unknown]
